FAERS Safety Report 14233791 (Version 4)
Quarter: 2018Q1

REPORT INFORMATION
  Report Type: Spontaneous
  Country: CA (occurrence: CA)
  Receive Date: 20171129
  Receipt Date: 20180314
  Transmission Date: 20180508
  Serious: Yes (Other)
  Sender: FDA-Public Use
  Company Number: CA-PFIZER INC-2017508538

PATIENT
  Age: 61 Year
  Sex: Male

DRUGS (9)
  1. LOSEC [Concomitant]
     Active Substance: OMEPRAZOLE
     Dosage: 20 MG, 2X/DAY
     Route: 048
  2. TAMSULOSIN [Concomitant]
     Active Substance: TAMSULOSIN
     Dosage: 0.4 MG 2 DF (TABLETS), 2X/DAY
     Route: 048
     Dates: start: 2012
  3. PREDNISOLONE. [Concomitant]
     Active Substance: PREDNISOLONE
     Dosage: 1 DROP IN EACH EYE ONCE A DAY
     Route: 047
  4. GABAPENTIN. [Suspect]
     Active Substance: GABAPENTIN
     Dosage: 300 MG - 9 A DAY
     Route: 048
     Dates: start: 2002
  5. AVENTYL [Concomitant]
     Active Substance: NORTRIPTYLINE HYDROCHLORIDE
     Dosage: 75 MG, AT BEDTIME
     Route: 048
  6. PREDNISONE. [Concomitant]
     Active Substance: PREDNISONE
     Dosage: 5 MG, 1X/DAY
     Route: 048
  7. TRAZODONE [Concomitant]
     Active Substance: TRAZODONE HYDROCHLORIDE
     Dosage: 250 MG, AT BEDTIME
     Route: 048
  8. NOCDURNA [Concomitant]
     Dosage: 25 MG, BEDTIME
     Route: 048
     Dates: start: 2017
  9. DUTASTERIDE. [Concomitant]
     Active Substance: DUTASTERIDE
     Dosage: 0.5 MG, 1X/DAY
     Route: 048
     Dates: start: 2013

REACTIONS (2)
  - Cellulitis [Unknown]
  - Malaise [Unknown]
